FAERS Safety Report 13021672 (Version 5)
Quarter: 2017Q1

REPORT INFORMATION
  Report Type: Spontaneous
  Country: US (occurrence: US)
  Receive Date: 20161213
  Receipt Date: 20170323
  Transmission Date: 20170428
  Serious: Yes (Other)
  Sender: FDA-Public Use
  Company Number: US-AMGEN-USASP2016174366

PATIENT
  Age: 71 Year
  Sex: Male
  Weight: 99.79 kg

DRUGS (16)
  1. AMIODARONE HYDROCHLORIDE. [Suspect]
     Active Substance: AMIODARONE HYDROCHLORIDE
     Indication: ATRIAL FIBRILLATION
     Dosage: UNK, ONE PER DAY
     Route: 065
  2. PREGABALIN. [Suspect]
     Active Substance: PREGABALIN
     Indication: PAIN
     Dosage: 50 MG, BID
     Route: 048
  3. WARFARIN [Concomitant]
     Active Substance: WARFARIN
     Dosage: 5 MG, UNK
  4. PREGABALIN. [Suspect]
     Active Substance: PREGABALIN
     Indication: HYPOAESTHESIA
  5. POTASSIUM CITRATE. [Concomitant]
     Active Substance: POTASSIUM CITRATE
     Dosage: 10 MUG, UNK
  6. LYRICA [Interacting]
     Active Substance: PREGABALIN
     Indication: NEURALGIA
     Dosage: 50 MG, BID
     Route: 048
     Dates: start: 201611
  7. METOPROLOL TARTRATE. [Suspect]
     Active Substance: METOPROLOL TARTRATE
     Indication: ATRIAL FIBRILLATION
     Dosage: 1 DOSAGE FORM, ONE PER DAY
     Route: 065
  8. DILTIAZEM. [Concomitant]
     Active Substance: DILTIAZEM
     Dosage: 360 MG, UNK
  9. OMEPRAZOLE. [Concomitant]
     Active Substance: OMEPRAZOLE
     Dosage: 20 MG, UNK
  10. ASPIRIN. [Concomitant]
     Active Substance: ASPIRIN
     Dosage: 81 MG, UNK
  11. FUROSEMIDE. [Concomitant]
     Active Substance: FUROSEMIDE
     Dosage: 40 MG, UNK
  12. DALIRESP [Concomitant]
     Active Substance: ROFLUMILAST
     Dosage: 500 MUG, UNK
  13. ENBREL [Suspect]
     Active Substance: ETANERCEPT
     Indication: PRODUCT USED FOR UNKNOWN INDICATION
     Dosage: UNK
     Route: 065
  14. SERTRALINE HCL [Concomitant]
     Active Substance: SERTRALINE HYDROCHLORIDE
     Dosage: 50 MG, UNK
  15. LORATADINE. [Concomitant]
     Active Substance: LORATADINE
     Dosage: 10 MG, UNK
  16. PREGABALIN. [Suspect]
     Active Substance: PREGABALIN
     Indication: NEURALGIA

REACTIONS (9)
  - Hypoacusis [Recovered/Resolved]
  - Feeling drunk [Recovered/Resolved]
  - Fatigue [Recovered/Resolved]
  - Drug interaction [Recovered/Resolved]
  - Deafness [Unknown]
  - Feeling abnormal [Recovered/Resolved]
  - Neuralgia [Unknown]
  - Arrhythmia [Unknown]
  - Sleep disorder due to a general medical condition [Unknown]
